FAERS Safety Report 8501988-X (Version None)
Quarter: 2012Q2

REPORT INFORMATION
  Report Type: 
  Country: None (occurrence: None)
  Receive Date: 20120405
  Receipt Date: 20100802
  Transmission Date: 20120825
  Serious: Yes (Other)
  Sender: FDA-Public Use
  Company Number: PHHY2010US50556

PATIENT
  Age: 39 Year
  Sex: Female
  Weight: 72.6 kg

DRUGS (1)
  1. RECLAST [Suspect]
     Indication: OSTEOPOROSIS
     Dosage: 5 MG/ ANNUAL, INTRAVENOUS
     Route: 042
     Dates: start: 20100601

REACTIONS (1)
  - BONE PAIN [None]
